FAERS Safety Report 7954060-1 (Version None)
Quarter: 2011Q4

REPORT INFORMATION
  Report Type: 
  Country: None (occurrence: None)
  Receive Date: 20111202
  Receipt Date: 20111128
  Transmission Date: 20120403
  Serious: Yes (Hospitalization, Other)
  Sender: FDA-Public Use
  Company Number: US-CELGENEUS-163-21880-11091595

PATIENT
  Sex: Male

DRUGS (25)
  1. TRAZODONE HCL [Concomitant]
     Dosage: 150 MILLIGRAM
     Route: 048
  2. DEXAMETHASONE [Concomitant]
     Route: 048
  3. SIMVASTATIN [Concomitant]
     Dosage: 40 MILLIGRAM
     Route: 048
  4. ATENOLOL [Concomitant]
     Dosage: 25 MILLIGRAM
     Route: 048
  5. CYANOCOBALAMIN [Concomitant]
     Dosage: 1000 MICROGRAM
     Route: 065
  6. HYDROMORPHONE HCL [Concomitant]
     Dosage: 2 MILLIGRAM
     Route: 048
  7. REVLIMID [Suspect]
     Indication: MULTIPLE MYELOMA
     Dosage: 25 MILLIGRAM
     Route: 048
     Dates: start: 20110720
  8. CITALOPRAM [Concomitant]
     Dosage: 10 MILLIGRAM
     Route: 048
  9. AMBIEN CR [Concomitant]
     Dosage: 12.5 MILLIGRAM
     Route: 048
  10. LIDOCAINE-HYDROCORTISONE AC [Concomitant]
     Route: 061
  11. SENOKOT [Concomitant]
     Route: 048
  12. ZOFRAN ODT [Concomitant]
     Dosage: 8 MILLIGRAM
     Route: 048
  13. MIRALAX [Concomitant]
     Dosage: 17 GRAM
     Route: 048
  14. MUPIROCIN [Concomitant]
     Route: 061
  15. NEPHROCAPS [Concomitant]
     Dosage: 1 CAPSULE
     Route: 048
  16. ONDANSETRON [Concomitant]
     Dosage: 4 MILLIGRAM
     Route: 048
  17. HYDROCODONE BITARTRATE AND ACETAMINOPHEN [Concomitant]
     Dosage: 10-325MG
     Route: 048
  18. DESMOPRESSIN ACETATE [Concomitant]
     Route: 055
  19. REVLIMID [Suspect]
     Dosage: 5 MILLIGRAM
     Route: 048
     Dates: start: 20110801, end: 20110801
  20. RENVELA [Concomitant]
     Dosage: 800 MILLIGRAM
     Route: 048
  21. SALINE NASAL [Concomitant]
     Route: 045
  22. ASPIRIN [Concomitant]
     Dosage: 81 MILLIGRAM
     Route: 048
  23. HYDRALAZINE HCL [Concomitant]
     Dosage: 25 MILLIGRAM
     Route: 048
  24. SYNTHROID [Concomitant]
     Dosage: 100 MICROGRAM
     Route: 048
  25. RED BLOOD CELLS [Concomitant]
     Route: 041
     Dates: start: 20110819

REACTIONS (3)
  - DYSPHAGIA [None]
  - FEBRILE NEUTROPENIA [None]
  - PNEUMONIA ASPIRATION [None]
